FAERS Safety Report 4747499-9 (Version None)
Quarter: 2005Q3

REPORT INFORMATION
  Report Type: 
  Country: None (occurrence: None)
  Receive Date: 20050815
  Receipt Date: 20050603
  Transmission Date: 20060218
  Serious: No
  Sender: FDA-Public Use
  Company Number: USA050699710

PATIENT
  Age: 62 Year
  Sex: Male

DRUGS (3)
  1. CIALIS [Suspect]
     Indication: ERECTILE DYSFUNCTION
     Dosage: 20 MG
     Dates: start: 20050501
  2. AMITRIPTYLINE HCL [Concomitant]
  3. PROPOXYPHENE HCL [Concomitant]

REACTIONS (2)
  - NECK PAIN [None]
  - SHOULDER PAIN [None]
